FAERS Safety Report 7072217-1 (Version None)
Quarter: 2010Q4

REPORT INFORMATION
  Report Type: 
  Country: None (occurrence: None)
  Receive Date: 20101029
  Receipt Date: 20100315
  Transmission Date: 20110411
  Serious: No
  Sender: FDA-Public Use
  Company Number: A0836267A

PATIENT
  Sex: Male

DRUGS (1)
  1. ADVAIR DISKUS 100/50 [Suspect]
     Indication: PRODUCT USED FOR UNKNOWN INDICATION
     Dosage: 1PUFF PER DAY
     Route: 055
     Dates: start: 20060101

REACTIONS (4)
  - DRUG ADMINISTRATION ERROR [None]
  - LOWER RESPIRATORY TRACT INFECTION [None]
  - NASOPHARYNGITIS [None]
  - PRODUCT QUALITY ISSUE [None]
